FAERS Safety Report 21920475 (Version 13)
Quarter: 2025Q1

REPORT INFORMATION
  Report Type: Report from Study
  Country: US (occurrence: US)
  Receive Date: 20230127
  Receipt Date: 20250127
  Transmission Date: 20250409
  Serious: Yes (Hospitalization, Other)
  Sender: TAKEDA
  Company Number: US-TAKEDA-US201944618

PATIENT
  Age: 34 Year
  Sex: Female
  Weight: 102 kg

DRUGS (26)
  1. HUMAN IMMUNOGLOBULIN G\HYALURONIDASE RECOMBINANT HUMAN [Suspect]
     Active Substance: HUMAN IMMUNOGLOBULIN G\HYALURONIDASE (HUMAN RECOMBINANT)
     Indication: Primary immunodeficiency syndrome
  2. HUMAN IMMUNOGLOBULIN G\HYALURONIDASE RECOMBINANT HUMAN [Suspect]
     Active Substance: HUMAN IMMUNOGLOBULIN G\HYALURONIDASE (HUMAN RECOMBINANT)
     Indication: Immunodeficiency common variable
  3. CUVITRU [Suspect]
     Active Substance: HUMAN IMMUNOGLOBULIN G
     Indication: Immunodeficiency common variable
     Dosage: 12 GRAM, 1/WEEK
     Dates: start: 20191211
  4. CUVITRU [Suspect]
     Active Substance: HUMAN IMMUNOGLOBULIN G
     Dosage: 13 GRAM, 1/WEEK
     Dates: start: 20191213
  5. CUVITRU [Suspect]
     Active Substance: HUMAN IMMUNOGLOBULIN G
     Dosage: 13 GRAM, 1/WEEK
  6. CUVITRU [Suspect]
     Active Substance: HUMAN IMMUNOGLOBULIN G
     Dosage: 14 GRAM, 1/WEEK
  7. ACETAMINOPHEN [Concomitant]
     Active Substance: ACETAMINOPHEN
  8. DIPHENHYDRAMINE [Concomitant]
     Active Substance: DIPHENHYDRAMINE
  9. Lmx [Concomitant]
  10. CYCLOBENZAPRINE [Concomitant]
     Active Substance: CYCLOBENZAPRINE
  11. ALBUTEROL [Concomitant]
     Active Substance: ALBUTEROL
  12. EMGALITY [Concomitant]
     Active Substance: GALCANEZUMAB-GNLM
  13. FLONASE [Concomitant]
     Active Substance: FLUTICASONE PROPIONATE
  14. AZELASTINE [Concomitant]
     Active Substance: AZELASTINE
  15. EFFEXOR [Concomitant]
     Active Substance: VENLAFAXINE HYDROCHLORIDE
  16. DULERA [Concomitant]
     Active Substance: FORMOTEROL FUMARATE DIHYDRATE\MOMETASONE FUROATE
  17. BUDESONIDE [Concomitant]
     Active Substance: BUDESONIDE
  18. ULTRAM [Concomitant]
     Active Substance: TRAMADOL HYDROCHLORIDE
  19. LINZESS [Concomitant]
     Active Substance: LINACLOTIDE
  20. EPINEPHRINE [Concomitant]
     Active Substance: EPINEPHRINE
     Indication: Product used for unknown indication
  21. ALBUTEROL SULFATE [Concomitant]
     Active Substance: ALBUTEROL SULFATE
  22. OMEPRAZOLE [Concomitant]
     Active Substance: OMEPRAZOLE
  23. ALLEGRA ALLERGY [Concomitant]
     Active Substance: FEXOFENADINE HYDROCHLORIDE
  24. CELEXA [Concomitant]
     Active Substance: CITALOPRAM HYDROBROMIDE
  25. SINGULAIR [Concomitant]
     Active Substance: MONTELUKAST SODIUM
  26. DIPHENHYDRAMINE HYDROCHLORIDE [Concomitant]
     Active Substance: DIPHENHYDRAMINE HYDROCHLORIDE

REACTIONS (28)
  - Postpartum haemorrhage [Unknown]
  - Blood pressure abnormal [Unknown]
  - Pregnancy [Recovered/Resolved]
  - Pharyngitis streptococcal [Unknown]
  - Urinary tract infection [Unknown]
  - Retained placenta or membranes [Unknown]
  - Weight increased [Unknown]
  - Tooth infection [Unknown]
  - Tooth abscess [Unknown]
  - COVID-19 [Recovered/Resolved]
  - Ear infection [Unknown]
  - Gastroenteritis viral [Unknown]
  - Bronchitis [Unknown]
  - Depression [Unknown]
  - Insurance issue [Unknown]
  - Sinusitis [Not Recovered/Not Resolved]
  - Upper respiratory tract infection [Unknown]
  - Product use issue [Unknown]
  - Incorrect drug administration rate [Unknown]
  - Product dose omission issue [Unknown]
  - Infusion site discharge [Unknown]
  - Influenza [Unknown]
  - Respiratory syncytial virus infection [Unknown]
  - Product distribution issue [Unknown]
  - Nausea [Unknown]
  - Infusion site bruising [Unknown]
  - Headache [Unknown]
  - Infusion site pruritus [Unknown]

NARRATIVE: CASE EVENT DATE: 20220719
